FAERS Safety Report 9125171 (Version 1)
Quarter: 2013Q1

REPORT INFORMATION
  Report Type: Spontaneous
  Country: US (occurrence: US)
  Receive Date: 20130227
  Receipt Date: 20130227
  Transmission Date: 20140127
  Serious: Yes (Hospitalization, Other)
  Sender: FDA-Public Use
  Company Number: US-ASTRAZENECA-2013SE11137

PATIENT
  Age: 63 Year
  Sex: Male

DRUGS (3)
  1. LISINOPRIL [Suspect]
     Route: 048
  2. CARDIZEM [Suspect]
     Route: 065
  3. AMLODIPINE BESYLATE [Suspect]
     Route: 065

REACTIONS (4)
  - Osteitis [Unknown]
  - Swelling face [Unknown]
  - Pharyngeal oedema [Unknown]
  - Local swelling [Unknown]
